FAERS Safety Report 11616546 (Version 1)
Quarter: 2015Q4

REPORT INFORMATION
  Report Type: Spontaneous
  Country: KR (occurrence: KR)
  Receive Date: 20151009
  Receipt Date: 20151009
  Transmission Date: 20160304
  Serious: Yes (Hospitalization, Other)
  Sender: FDA-Public Use
  Company Number: PHHY2015KR121093

PATIENT
  Age: 54 Year
  Sex: Female

DRUGS (5)
  1. DOXORUBICIN [Suspect]
     Active Substance: DOXORUBICIN
     Indication: EXOPHTHALMOS
     Dosage: 25 MG/M2
     Route: 042
  2. CISPLATIN. [Suspect]
     Active Substance: CISPLATIN
     Indication: ADENOID CYSTIC CARCINOMA
     Dosage: 60 MG/M2
     Route: 041
  3. DOXORUBICIN [Suspect]
     Active Substance: DOXORUBICIN
     Dosage: 60 MG/M2
     Route: 042
  4. CISPLATIN. [Suspect]
     Active Substance: CISPLATIN
     Indication: EXOPHTHALMOS
     Dosage: 80 MG/M2
     Route: 041
  5. DOXORUBICIN [Suspect]
     Active Substance: DOXORUBICIN
     Indication: ADENOID CYSTIC CARCINOMA
     Dosage: 80 MG/M2
     Route: 042

REACTIONS (7)
  - Neutropenia [Unknown]
  - Mastication disorder [Unknown]
  - Cellulitis [Unknown]
  - Bone erosion [Recovered/Resolved]
  - Phlebitis [Unknown]
  - Blister [Recovered/Resolved]
  - Swelling face [Unknown]
